FAERS Safety Report 5009476-2 (Version None)
Quarter: 2006Q2

REPORT INFORMATION
  Report Type: 
  Country: None (occurrence: None)
  Receive Date: 20060522
  Receipt Date: 20060506
  Transmission Date: 20061013
  Serious: Yes (Hospitalization)
  Sender: FDA-Public Use
  Company Number: COT_0500_2006

PATIENT
  Age: 58 Year
  Sex: Female
  Weight: 68.0396 kg

DRUGS (6)
  1. VENTAVIS [Suspect]
     Indication: PULMONARY HYPERTENSION
     Dosage: 5 MCG 6TO9X/DAY IH
     Route: 025
     Dates: start: 20060502, end: 20060511
  2. COUMADIN [Suspect]
  3. NEXIUM [Concomitant]
  4. NORVASC [Concomitant]
  5. PREDNISONE [Concomitant]
  6. TRACLEER [Concomitant]

REACTIONS (2)
  - CHEST PAIN [None]
  - EPISTAXIS [None]
